FAERS Safety Report 6124098-8 (Version None)
Quarter: 2009Q1

REPORT INFORMATION
  Report Type: 
  Country: None (occurrence: None)
  Receive Date: 20090319
  Receipt Date: 20090310
  Transmission Date: 20090719
  Serious: Yes (Other)
  Sender: FDA-Public Use
  Company Number: DE-ASTRAZENECA-2009PK00426

PATIENT
  Sex: Female
  Weight: 68.4 kg

DRUGS (1)
  1. ARIMIDEX [Suspect]
     Indication: BREAST CANCER
     Route: 048
     Dates: start: 20081020, end: 20090128

REACTIONS (7)
  - ARTHROPATHY [None]
  - ASTHENIA [None]
  - CARPAL TUNNEL SYNDROME [None]
  - CUBITAL TUNNEL SYNDROME [None]
  - FREQUENT BOWEL MOVEMENTS [None]
  - HOT FLUSH [None]
  - POLLAKIURIA [None]
